FAERS Safety Report 18436848 (Version 2)
Quarter: 2020Q4

REPORT INFORMATION
  Report Type: Report from Study
  Country: US (occurrence: US)
  Receive Date: 20201028
  Receipt Date: 20201112
  Transmission Date: 20210114
  Serious: Yes (Other)
  Sender: FDA-Public Use
  Company Number: US-TAKEDA-2019TUS056869

PATIENT
  Sex: Female

DRUGS (2)
  1. FLAGYL [Suspect]
     Active Substance: METRONIDAZOLE\METRONIDAZOLE HYDROCHLORIDE
     Indication: PRODUCT USED FOR UNKNOWN INDICATION
     Dosage: UNK
     Route: 065
  2. VEDOLIZUMAB [Suspect]
     Active Substance: VEDOLIZUMAB
     Indication: CROHN^S DISEASE
     Dosage: 300 MILLIGRAM
     Route: 042

REACTIONS (19)
  - Limb discomfort [Not Recovered/Not Resolved]
  - Mental impairment [Unknown]
  - Alopecia areata [Unknown]
  - Neuropathy peripheral [Not Recovered/Not Resolved]
  - Anxiety [Unknown]
  - Muscle discomfort [Unknown]
  - Pruritus [Unknown]
  - Musculoskeletal discomfort [Unknown]
  - Amnesia [Unknown]
  - Muscle disorder [Unknown]
  - Nausea [Unknown]
  - Brain injury [Unknown]
  - Visual impairment [Unknown]
  - Abdominal adhesions [Unknown]
  - Pain [Unknown]
  - Dyspnoea [Unknown]
  - Pouchitis [Unknown]
  - Emotional distress [Unknown]
  - Migraine [Unknown]
